FAERS Safety Report 4558564-3 (Version None)
Quarter: 2005Q1

REPORT INFORMATION
  Report Type: 
  Country: None (occurrence: None)
  Receive Date: 20050121
  Receipt Date: 20050111
  Transmission Date: 20050727
  Serious: Yes (Other)
  Sender: FDA-Public Use
  Company Number: FR-BRISTOL-MYERS SQUIBB COMPANY-12821765

PATIENT
  Age: 1 Day
  Sex: Female
  Weight: 2 kg

DRUGS (8)
  1. VIDEX [Suspect]
     Route: 064
     Dates: end: 20041209
  2. RETROVIR [Suspect]
     Indication: PROPHYLAXIS
     Dosage: DOSAGE REDUCED TO 1.5 MG/KG TWICE DAILY ON 10-DEC-2004
     Route: 042
     Dates: start: 20041209
  3. CLAMOXYL [Suspect]
     Route: 042
     Dates: start: 20041209, end: 20041210
  4. RETROVIR [Suspect]
     Dosage: GIVEN INTRAVENOUSLY TO THE MOTHER DURING LABOR
     Route: 064
     Dates: start: 20041209, end: 20041209
  5. VIRACEPT [Suspect]
     Route: 064
     Dates: end: 20041209
  6. TRANQUITAL [Suspect]
     Route: 064
     Dates: end: 20041209
  7. CLAFORAN [Concomitant]
     Indication: BACTERIAL CULTURE POSITIVE
     Route: 042
     Dates: end: 20041210
  8. GENTAMICIN [Concomitant]
     Indication: BACTERIAL CULTURE POSITIVE

REACTIONS (12)
  - BACTERIAL CULTURE POSITIVE [None]
  - BLOOD BILIRUBIN INCREASED [None]
  - BLOOD LACTIC ACID INCREASED [None]
  - C-REACTIVE PROTEIN INCREASED [None]
  - CAESAREAN SECTION [None]
  - DRUG EXPOSURE DURING PREGNANCY [None]
  - GASTRIC INFECTION [None]
  - HAEMOPHILUS INFECTION [None]
  - NEONATAL RESPIRATORY DISTRESS SYNDROME [None]
  - RESPIRATORY DISTRESS [None]
  - TREMOR [None]
  - TREMOR NEONATAL [None]
